FAERS Safety Report 7771474-3 (Version None)
Quarter: 2011Q3

REPORT INFORMATION
  Report Type: 
  Country: None (occurrence: None)
  Receive Date: 20110922
  Receipt Date: 20110909
  Transmission Date: 20111222
  Serious: No
  Sender: FDA-Public Use
  Company Number: US-ASTRAZENECA-2011SE23396

PATIENT
  Age: 57 Year
  Sex: Male
  Weight: 72.1 kg

DRUGS (9)
  1. SEROQUEL [Suspect]
     Indication: BIPOLAR DISORDER
     Route: 048
     Dates: start: 20110401
  2. ANTI-ANXIETY MEDICATION [Concomitant]
     Indication: ANXIETY
  3. FLUOXETINE [Concomitant]
     Indication: DEPRESSION
  4. SEROQUEL [Suspect]
     Indication: FEAR
     Route: 048
     Dates: start: 20110401
  5. SEROQUEL [Suspect]
     Indication: NERVOUSNESS
     Route: 048
     Dates: start: 20110401
  6. COUMADIN [Concomitant]
     Indication: THROMBOSIS
  7. PROSTATE MEDICATION [Concomitant]
     Indication: PROSTATIC DISORDER
  8. ANTI-DEPRESSION MEDICATION [Concomitant]
     Indication: DEPRESSION
  9. ALPRAZOLAM [Concomitant]
     Indication: ANXIETY

REACTIONS (9)
  - INCORRECT DOSE ADMINISTERED [None]
  - PARANOIA [None]
  - HEAD DISCOMFORT [None]
  - TACHYPHRENIA [None]
  - NERVOUSNESS [None]
  - EAR DISCOMFORT [None]
  - FEAR [None]
  - OFF LABEL USE [None]
  - DRUG DOSE OMISSION [None]
